FAERS Safety Report 4873592-6 (Version None)
Quarter: 2005Q4

REPORT INFORMATION
  Report Type: 
  Country: None (occurrence: None)
  Receive Date: 20051201
  Receipt Date: 20050901
  Transmission Date: 20060501
  Serious: No
  Sender: FDA-Public Use
  Company Number: 2005PV001472

PATIENT
  Age: 65 Year
  Sex: Female
  Weight: 63.5036 kg

DRUGS (11)
  1. BYETTA [Suspect]
     Indication: DIABETES MELLITUS NON-INSULIN-DEPENDENT
     Dosage: SEE IMAGE
     Route: 058
     Dates: start: 20050805, end: 20050827
  2. BYETTA [Suspect]
     Indication: DIABETES MELLITUS NON-INSULIN-DEPENDENT
     Dosage: SEE IMAGE
     Route: 058
     Dates: start: 20050828
  3. HYZAAR [Concomitant]
  4. IBUPROFEN [Concomitant]
  5. ASPIRIN [Concomitant]
  6. COENZYME Q10 [Concomitant]
  7. FISH OIL [Concomitant]
  8. CALCIUM GLUCONATE [Concomitant]
  9. BIOTIN [Concomitant]
  10. L-CARNITINE [Concomitant]
  11. ESTROGEN NOS [Concomitant]

REACTIONS (4)
  - BACK PAIN [None]
  - BLOOD URINE [None]
  - MUSCLE SPASMS [None]
  - RENAL PAIN [None]
